FAERS Safety Report 8354335-0 (Version None)
Quarter: 2012Q2

REPORT INFORMATION
  Report Type: 
  Country: None (occurrence: None)
  Receive Date: 20120511
  Receipt Date: 20120426
  Transmission Date: 20120825
  Serious: Yes (Life-Threatening)
  Sender: FDA-Public Use
  Company Number: AU-ROCHE-1064168

PATIENT
  Sex: Female

DRUGS (1)
  1. ACTEMRA [Suspect]
     Indication: RHEUMATOID ARTHRITIS
     Route: 065
     Dates: start: 20101223

REACTIONS (4)
  - PULMONARY THROMBOSIS [None]
  - GASTRIC CANCER [None]
  - NECK MASS [None]
  - PANCREATIC CARCINOMA [None]
